FAERS Safety Report 10356956 (Version 1)
Quarter: 2014Q3

REPORT INFORMATION
  Report Type: Spontaneous
  Country: CN (occurrence: CN)
  Receive Date: 20140801
  Receipt Date: 20140801
  Transmission Date: 20150326
  Serious: Yes (Other)
  Sender: FDA-Public Use
  Company Number: CN-JNJFOC-20140714780

PATIENT
  Age: 34 Year
  Sex: Female

DRUGS (4)
  1. TOPAMAX [Suspect]
     Active Substance: TOPIRAMATE
     Indication: EPILEPSY
     Route: 048
  2. TOPAMAX [Suspect]
     Active Substance: TOPIRAMATE
     Indication: EPILEPSY
     Dosage: 75 MG IN THE MORNING, 100MG IN THE EVENING
     Route: 048
  3. TOPAMAX [Suspect]
     Active Substance: TOPIRAMATE
     Indication: EPILEPSY
     Dosage: 175 MG IN THE MORNING, 200MG IN THE??EVENING
     Route: 048
     Dates: start: 201403
  4. CARBAMAZEPINE. [Concomitant]
     Active Substance: CARBAMAZEPINE
     Indication: PRODUCT USED FOR UNKNOWN INDICATION
     Dosage: 1.5 PILLS IN THE MORNING, 1 PILL AT NOON, 1.5 PILLS IN THE EVENING
     Route: 065

REACTIONS (5)
  - Joint dislocation [Unknown]
  - Epilepsy [Recovered/Resolved]
  - Drug ineffective [Unknown]
  - Generalised tonic-clonic seizure [Recovered/Resolved]
  - Treatment noncompliance [Unknown]
